FAERS Safety Report 7562599-6 (Version None)
Quarter: 2011Q2

REPORT INFORMATION
  Report Type: 
  Country: None (occurrence: None)
  Receive Date: 20110622
  Receipt Date: 20110615
  Transmission Date: 20111010
  Serious: Yes (Hospitalization)
  Sender: FDA-Public Use
  Company Number: BR-US-EMD SERONO, INC.-7065518

PATIENT
  Sex: Female

DRUGS (4)
  1. OMEPRAZOLE [Concomitant]
  2. REBIF [Suspect]
     Indication: RELAPSING-REMITTING MULTIPLE SCLEROSIS
     Dates: start: 20050916
  3. PREDNISONE [Concomitant]
  4. BACLOFEN [Concomitant]

REACTIONS (4)
  - GAIT DISTURBANCE [None]
  - PYREXIA [None]
  - MUSCULAR WEAKNESS [None]
  - CHILLS [None]
